FAERS Safety Report 15595633 (Version 1)
Quarter: 2018Q4

REPORT INFORMATION
  Report Type: Report from Study
  Country: US (occurrence: US)
  Receive Date: 20181107
  Receipt Date: 20181107
  Transmission Date: 20190205
  Serious: Yes (Other)
  Sender: FDA-Public Use
  Company Number: US-AMGEN INC.-USASL2018155015

PATIENT
  Age: 40 Year
  Sex: Male

DRUGS (1)
  1. AIMOVIG [Suspect]
     Active Substance: ERENUMAB-AOOE
     Indication: MIGRAINE
     Dosage: 140 MG, UNK (2X70 MG)
     Route: 065
     Dates: start: 20181027

REACTIONS (7)
  - Emotional poverty [Not Recovered/Not Resolved]
  - Depression [Recovered/Resolved]
  - Dry mouth [Unknown]
  - Paraesthesia oral [Unknown]
  - Anxiety [Recovered/Resolved]
  - Fear [Recovered/Resolved]
  - Dissociation [Recovered/Resolved]

NARRATIVE: CASE EVENT DATE: 20181030
